FAERS Safety Report 10342891 (Version 1)
Quarter: 2014Q3

REPORT INFORMATION
  Report Type: Spontaneous
  Country: US (occurrence: None)
  Receive Date: 20140723
  Receipt Date: 20140723
  Transmission Date: 20150326
  Serious: Yes (Hospitalization)
  Sender: FDA-Public Use
  Company Number: US-H14001-14-00254

PATIENT
  Age: 39 Year
  Sex: Female

DRUGS (3)
  1. SESAME OIL [Suspect]
     Active Substance: SESAME OIL
     Indication: PRODUCT USED FOR UNKNOWN INDICATION
  2. BENZYL ALCOHOL [Suspect]
     Active Substance: BENZYL ALCOHOL
     Indication: PRODUCT USED FOR UNKNOWN INDICATION
  3. PROGESTERONE. [Suspect]
     Active Substance: PROGESTERONE
     Indication: IN VITRO FERTILISATION
     Route: 030

REACTIONS (7)
  - Eosinophilic pneumonia [None]
  - Dizziness [None]
  - Pleural effusion [None]
  - Blood pressure decreased [None]
  - Respiratory distress [None]
  - Ventricular hypokinesia [None]
  - Type IV hypersensitivity reaction [None]
